FAERS Safety Report 4447726-1 (Version None)
Quarter: 2004Q3

REPORT INFORMATION
  Report Type: 
  Country: None (occurrence: None)
  Receive Date: 20040802
  Receipt Date: 20040701
  Transmission Date: 20050211
  Serious: No
  Sender: FDA-Public Use
  Company Number: 2004-118021-NL

PATIENT
  Age: 18 Year
  Sex: Female
  Weight: 54.4 kg

DRUGS (6)
  1. NUVARING [Suspect]
     Indication: CONTRACEPTION
     Dosage: DF DAILY VAGINAL
     Route: 067
     Dates: start: 20040617
  2. NUVARING [Suspect]
     Indication: DYSMENORRHOEA
     Dosage: DF DAILY VAGINAL
     Route: 067
     Dates: start: 20040617
  3. NUVARING [Suspect]
     Indication: RASH PAPULAR
     Dosage: DF DAILY VAGINAL
     Route: 067
     Dates: start: 20040617
  4. TERAZOL 7 [Concomitant]
  5. ESTRACE VAGINAL CREAM [Concomitant]
  6. BETAMEGH CREAM [Concomitant]

REACTIONS (2)
  - DEVICE FAILURE [None]
  - VAGINAL CONTRACEPTIVE DEVICE EXPELLED [None]
